FAERS Safety Report 25863733 (Version 1)
Quarter: 2025Q3

REPORT INFORMATION
  Report Type: Spontaneous
  Country: EU (occurrence: EU)
  Receive Date: 20250930
  Receipt Date: 20250930
  Transmission Date: 20251020
  Serious: Yes (Other)
  Sender: MYLAN
  Company Number: EU-MYLANLABS-2025M1083019

PATIENT
  Age: 7 Year
  Sex: Male

DRUGS (1)
  1. ZOLEDRONIC ACID [Suspect]
     Active Substance: ZOLEDRONIC ACID
     Indication: Fibrous dysplasia of bone

REACTIONS (3)
  - Osteonecrosis of jaw [Unknown]
  - Drug ineffective [Unknown]
  - Off label use [Unknown]
